FAERS Safety Report 5265935-9 (Version None)
Quarter: 2007Q1

REPORT INFORMATION
  Report Type: 
  Country: None (occurrence: None)
  Receive Date: 20070315
  Receipt Date: 20070301
  Transmission Date: 20070707
  Serious: Yes (Hospitalization)
  Sender: FDA-Public Use
  Company Number: PHHO2007JP04195

PATIENT
  Age: 66 Year
  Sex: Male
  Weight: 65 kg

DRUGS (9)
  1. ASPIRIN [Concomitant]
     Indication: CEREBRAL INFARCTION
  2. AMARYL [Concomitant]
     Indication: DIABETES MELLITUS
  3. PERDIPINE-LA [Concomitant]
     Indication: HYPERTENSION
  4. EPADEL [Concomitant]
     Indication: ARTERIOSCLEROSIS OBLITERANS
  5. LASIX [Concomitant]
     Indication: HYPERTENSION
  6. FLUITRAN [Concomitant]
     Indication: HYPERTENSION
  7. DIOVAN [Suspect]
     Indication: HYPERTENSION
     Dosage: 40 MG, QD
     Route: 048
     Dates: start: 20030908, end: 20031027
  8. DIOVAN [Suspect]
     Dosage: 80 MG, QD
     Route: 048
     Dates: start: 20031028, end: 20040419
  9. DIOVAN [Suspect]
     Dosage: 160 MG, QD
     Route: 048
     Dates: start: 20040420

REACTIONS (3)
  - DIZZINESS [None]
  - THROMBOTIC STROKE [None]
  - VOMITING [None]
